FAERS Safety Report 7091128-9 (Version None)
Quarter: 2010Q4

REPORT INFORMATION
  Report Type: 
  Country: None (occurrence: None)
  Receive Date: 20101109
  Receipt Date: 20101105
  Transmission Date: 20110411
  Serious: Yes (Hospitalization)
  Sender: FDA-Public Use
  Company Number: IT-ROCHE-720800

PATIENT
  Sex: Male

DRUGS (12)
  1. VESANOID [Suspect]
     Route: 048
     Dates: start: 20100215, end: 20100306
  2. VESANOID [Suspect]
     Route: 048
  3. AUGMENTIN '125' [Concomitant]
     Route: 048
  4. SPORANOX [Concomitant]
     Route: 048
  5. ACICLIN [Concomitant]
     Route: 048
  6. DELTACORTENE [Concomitant]
     Route: 048
  7. DAPAROX [Concomitant]
     Route: 048
  8. ANAFRANIL [Concomitant]
     Route: 048
  9. LORAZEPAM [Concomitant]
     Route: 048
  10. ANTRA [Concomitant]
     Route: 042
  11. EPREX [Concomitant]
     Route: 058
  12. GENTALYN [Concomitant]
     Route: 042

REACTIONS (1)
  - ALVEOLITIS [None]
